FAERS Safety Report 21323569 (Version 1)
Quarter: 2022Q3

REPORT INFORMATION
  Report Type: Spontaneous
  Country: CN (occurrence: None)
  Receive Date: 20220912
  Receipt Date: 20220912
  Transmission Date: 20221027
  Serious: Yes (Life-Threatening, Hospitalization, Other)
  Sender: FDA-Public Use
  Company Number: 2022A311968

PATIENT
  Age: 17114 Day
  Sex: Female

DRUGS (1)
  1. DAPAGLIFLOZIN [Suspect]
     Active Substance: DAPAGLIFLOZIN
     Indication: Blood glucose
     Route: 048
     Dates: start: 20220817

REACTIONS (6)
  - Hypovolaemic shock [Recovering/Resolving]
  - Escherichia urinary tract infection [Recovering/Resolving]
  - Hypernatraemia [Unknown]
  - Cerebral haemorrhage [Unknown]
  - Epilepsy [Unknown]
  - Soft tissue infection [Unknown]

NARRATIVE: CASE EVENT DATE: 20220822
